FAERS Safety Report 8304149-2 (Version None)
Quarter: 2012Q2

REPORT INFORMATION
  Report Type: 
  Country: None (occurrence: None)
  Receive Date: 20120423
  Receipt Date: 20120410
  Transmission Date: 20120825
  Serious: Yes (Hospitalization)
  Sender: FDA-Public Use
  Company Number: BR-JNJFOC-20120407203

PATIENT
  Sex: Female
  Weight: 42 kg

DRUGS (2)
  1. ANTIHYPERTENSIVE [Concomitant]
     Indication: HYPERTENSION
  2. XARELTO [Suspect]
     Indication: HIP ARTHROPLASTY
     Route: 048
     Dates: start: 20120301, end: 20120409

REACTIONS (1)
  - PULMONARY EMBOLISM [None]
